FAERS Safety Report 6944114-0 (Version None)
Quarter: 2010Q3

REPORT INFORMATION
  Report Type: 
  Country: None (occurrence: None)
  Receive Date: 20100827
  Receipt Date: 20100816
  Transmission Date: 20110219
  Serious: No
  Sender: FDA-Public Use
  Company Number: US-BIOGENIDEC-2010BI028540

PATIENT
  Age: 48 Year
  Sex: Female

DRUGS (3)
  1. TYSABRI [Suspect]
     Indication: MULTIPLE SCLEROSIS
     Route: 042
     Dates: start: 20090301
  2. DEPRESSION MEDICATION [NOS] [Concomitant]
     Indication: DEPRESSION
  3. BUPROPION HCL [Concomitant]
     Indication: DEPRESSION

REACTIONS (3)
  - ANXIETY [None]
  - DRUG HYPERSENSITIVITY [None]
  - INSOMNIA [None]
